FAERS Safety Report 13134466 (Version 4)
Quarter: 2017Q1

REPORT INFORMATION
  Report Type: Spontaneous
  Country: CA (occurrence: CA)
  Receive Date: 20170120
  Receipt Date: 20170210
  Transmission Date: 20170428
  Serious: Yes (Death, Hospitalization)
  Sender: FDA-Public Use
  Company Number: CA-UNITED THERAPEUTICS-UNT-2017-000563

PATIENT
  Age: 59 Year
  Sex: Male

DRUGS (1)
  1. REMODULIN [Suspect]
     Active Substance: TREPROSTINIL
     Indication: PULMONARY ARTERIAL HYPERTENSION
     Dosage: UNK, CONTINUING
     Route: 058
     Dates: start: 20161202

REACTIONS (4)
  - Pulmonary oedema [Not Recovered/Not Resolved]
  - Internal haemorrhage [Recovered/Resolved]
  - Myocardial infarction [Fatal]
  - Heart rate increased [Unknown]

NARRATIVE: CASE EVENT DATE: 201701
